FAERS Safety Report 20048679 (Version 4)
Quarter: 2022Q2

REPORT INFORMATION
  Report Type: Spontaneous
  Country: US (occurrence: US)
  Receive Date: 20211109
  Receipt Date: 20220531
  Transmission Date: 20220721
  Serious: Yes (Hospitalization, Other)
  Sender: FDA-Public Use
  Company Number: US-PFIZER INC-2021229213

PATIENT
  Age: 69 Year
  Sex: Male
  Weight: 117.91 kg

DRUGS (1)
  1. VYNDAMAX [Suspect]
     Active Substance: TAFAMIDIS
     Dosage: 61 MG, DAILY
     Route: 048

REACTIONS (3)
  - Heart transplant [Recovered/Resolved with Sequelae]
  - Cardiac infection [Unknown]
  - Skin cancer [Unknown]

NARRATIVE: CASE EVENT DATE: 20211125
